FAERS Safety Report 21700866 (Version 1)
Quarter: 2022Q4

REPORT INFORMATION
  Report Type: Spontaneous
  Country: BR (occurrence: BR)
  Receive Date: 20221208
  Receipt Date: 20221208
  Transmission Date: 20230112
  Serious: No
  Sender: FDA-Public Use
  Company Number: BR-BAXTER-2022BAX025789

PATIENT
  Age: 18 Year
  Sex: Female

DRUGS (2)
  1. IRON [Suspect]
     Active Substance: IRON
     Indication: Anaemia of pregnancy
     Dosage: 2 AMPOULES OF 100 MG IN 500 ML SODIUM CHLORIDE EVERY OTHER DAY AT A SPEED OF 4 HOURS
     Route: 042
     Dates: start: 20221121
  2. SODIUM CHLORIDE [Suspect]
     Active Substance: SODIUM CHLORIDE
     Indication: Medication dilution
     Dosage: 500 ML TO DILUTE 2 AMPOULE OF SUCROFER, EVERY OTHER DAY AT A SPEED OF 4 HOURS
     Route: 042
     Dates: start: 20221121

REACTIONS (7)
  - Off label use [Unknown]
  - Wrong technique in product usage process [Unknown]
  - Maternal exposure during pregnancy [Unknown]
  - Nausea [Recovered/Resolved]
  - Vomiting [Recovered/Resolved]
  - Paraesthesia [Recovered/Resolved]
  - Hypotension [Recovered/Resolved]

NARRATIVE: CASE EVENT DATE: 20221121
